FAERS Safety Report 16649409 (Version 2)
Quarter: 2019Q3

REPORT INFORMATION
  Report Type: Spontaneous
  Country: HU (occurrence: HU)
  Receive Date: 20190730
  Receipt Date: 20190807
  Transmission Date: 20191004
  Serious: Yes (Life-Threatening, Hospitalization, Other)
  Sender: FDA-Public Use
  Company Number: HU-PFIZER INC-2019325780

PATIENT
  Age: 59 Year
  Sex: Female

DRUGS (4)
  1. MEDROL [Suspect]
     Active Substance: METHYLPREDNISOLONE
     Dosage: 4 MG, UNK
  2. CIPROFLOXACIN [CIPROFLOXACIN HYDROCHLORIDE] [Concomitant]
     Active Substance: CIPROFLOXACIN HYDROCHLORIDE
     Indication: PERITONITIS
     Dosage: 400 MG, 2X/DAY
     Route: 042
     Dates: start: 20190607, end: 20190613
  3. MEDROL [Suspect]
     Active Substance: METHYLPREDNISOLONE
     Indication: RHEUMATOID ARTHRITIS
     Dosage: 64 MG, IN GRADUALLY REDUCED DOSE
     Dates: start: 20190611
  4. CLINDAMYCIN. [Concomitant]
     Active Substance: CLINDAMYCIN
     Indication: PERITONITIS
     Dosage: 600 MG, 3X/DAY
     Dates: start: 20190607, end: 20190613

REACTIONS (7)
  - Post procedural discharge [Not Recovered/Not Resolved]
  - Acinetobacter infection [Recovered/Resolved]
  - Cellulitis [Not Recovered/Not Resolved]
  - Staphylococcal infection [Recovered/Resolved]
  - Pyrexia [Unknown]
  - Escherichia infection [Not Recovered/Not Resolved]
  - Abdominal wall disorder [Not Recovered/Not Resolved]

NARRATIVE: CASE EVENT DATE: 2019
